FAERS Safety Report 8116384-7 (Version None)
Quarter: 2012Q1

REPORT INFORMATION
  Report Type: 
  Country: None (occurrence: None)
  Receive Date: 20120206
  Receipt Date: 20120131
  Transmission Date: 20120608
  Serious: Yes (Hospitalization)
  Sender: FDA-Public Use
  Company Number: GB-GLAXOSMITHKLINE-B0778463A

PATIENT
  Age: 59 Year
  Sex: Male
  Weight: 68.1 kg

DRUGS (3)
  1. OMEPRAZOLE [Concomitant]
     Dates: start: 20111003, end: 20111128
  2. NAPROXEN [Concomitant]
     Dates: start: 20111003, end: 20111031
  3. BUPROPION HCL [Suspect]

REACTIONS (4)
  - SUICIDAL IDEATION [None]
  - PARANOIA [None]
  - DEPRESSION [None]
  - ALCOHOL ABUSE [None]
